FAERS Safety Report 23015341 (Version 1)
Quarter: 2023Q4

REPORT INFORMATION
  Report Type: Spontaneous
  Country: US (occurrence: None)
  Receive Date: 20231002
  Receipt Date: 20231002
  Transmission Date: 20240109
  Serious: Yes (Death)
  Sender: FDA-Public Use
  Company Number: None

PATIENT
  Age: 62 Year
  Sex: Male

DRUGS (12)
  1. IMATINIB [Suspect]
     Active Substance: IMATINIB
     Indication: Leukaemia
     Dates: start: 20230810
  2. ATORVASTATIN [Concomitant]
  3. JULUCA [Concomitant]
  4. ALLOPURINOL [Concomitant]
  5. ASPIRIN [Concomitant]
  6. JARDIANCE [Concomitant]
  7. LISINOPRIL [Concomitant]
  8. METOPROLOL [Concomitant]
     Active Substance: METOPROLOL
  9. NIFEDIPINE [Concomitant]
     Active Substance: NIFEDIPINE
  10. ROSUVASTATIN [Concomitant]
  11. SODIUM BICARB [Concomitant]
  12. VITAMIN D [Concomitant]

REACTIONS (1)
  - Death [None]
